FAERS Safety Report 23065823 (Version 3)
Quarter: 2023Q4

REPORT INFORMATION
  Report Type: Report from Study
  Country: KR (occurrence: None)
  Receive Date: 20231014
  Receipt Date: 20231113
  Transmission Date: 20240110
  Serious: Yes (Hospitalization)
  Sender: FDA-Public Use
  Company Number: KR-ROCHE-3378703

PATIENT
  Age: 57 Year
  Sex: Female
  Weight: 51.3 kg

DRUGS (25)
  1. GLOFITAMAB [Suspect]
     Active Substance: GLOFITAMAB
     Indication: Diffuse large B-cell lymphoma
     Dosage: LAST DOSE ADMINISTERED PRIOR TO AE WAS ON 02/JUNE/2023, 15/SEP/2023?TEMPORARILY INTERRUPTED: 05/OCT/
     Route: 042
     Dates: start: 20230406
  2. POSELTINIB [Suspect]
     Active Substance: POSELTINIB
     Indication: Diffuse large B-cell lymphoma
     Dosage: LAST DOSE ADMINISTERED PRIOR TO AE WAS ON 12/JUNE/2023, 05/OCT/2023
     Route: 048
     Dates: start: 20230330
  3. LENALIDOMIDE [Suspect]
     Active Substance: LENALIDOMIDE
     Indication: Diffuse large B-cell lymphoma
     Dosage: LAST DOSE ADMINISTERED PRIOR TO AE WAS ON 12/JUNE/2023, 28/SEP/2023?TEMPORARILY INTERRUPTED: 5/OCT/2
     Route: 048
     Dates: start: 20230330
  4. GANCICLOVIR [Suspect]
     Active Substance: GANCICLOVIR
     Indication: Product used for unknown indication
     Route: 065
  5. TOPISOL MILK LOTION [Concomitant]
     Dosage: 1 RUB
     Dates: start: 20230614
  6. ESROBAN [Concomitant]
     Dates: start: 20230620
  7. V-GAVIR [Concomitant]
     Dates: start: 20230602, end: 20230621
  8. SULFAMETHOXAZOLE\TRIMETHOPRIM [Concomitant]
     Active Substance: SULFAMETHOXAZOLE\TRIMETHOPRIM
     Dates: start: 20230511, end: 20230613
  9. FLASINYL [Concomitant]
     Dates: start: 20231004, end: 20231005
  10. LOPERAMIDE [Concomitant]
     Active Substance: LOPERAMIDE
     Dates: start: 20231004, end: 20231005
  11. LOPERAMIDE [Concomitant]
     Active Substance: LOPERAMIDE
     Dates: start: 20231029
  12. RAMNOS [Concomitant]
     Dates: start: 20231004, end: 20231005
  13. RAMNOS [Concomitant]
     Dates: start: 20231031
  14. FOTAGEL [Concomitant]
  15. CANDEMORE [Concomitant]
     Dates: start: 20231006
  16. ZEMIGLO [Concomitant]
     Dates: start: 20230630
  17. METFORMIN HYDROCHLORIDE [Concomitant]
     Active Substance: METFORMIN HYDROCHLORIDE
  18. VIRREAL [Concomitant]
  19. ENOXAPARIN SODIUM [Concomitant]
     Active Substance: ENOXAPARIN SODIUM
  20. PANTOPRAZOLE SODIUM [Concomitant]
     Active Substance: PANTOPRAZOLE SODIUM
  21. FENTANYL [Concomitant]
     Active Substance: FENTANYL\FENTANYL CITRATE
  22. AMBROXOL [Concomitant]
     Active Substance: AMBROXOL
  23. PHOSPHA 250 NEUTRAL [Concomitant]
     Active Substance: POTASSIUM PHOSPHATE, MONOBASIC\SODIUM PHOSPHATE, DIBASIC, ANHYDROUS\SODIUM PHOSPHATE, MONOBASIC, MON
  24. DICAMAX [Concomitant]
  25. ALGIN N [Concomitant]

REACTIONS (2)
  - Stevens-Johnson syndrome [Recovered/Resolved]
  - Cytomegalovirus infection reactivation [Not Recovered/Not Resolved]

NARRATIVE: CASE EVENT DATE: 20230621
